FAERS Safety Report 6679924-0 (Version None)
Quarter: 2010Q2

REPORT INFORMATION
  Report Type: 
  Country: None (occurrence: None)
  Receive Date: 20100413
  Receipt Date: 20100315
  Transmission Date: 20101027
  Serious: Yes (Other)
  Sender: FDA-Public Use
  Company Number: US-BAXTER-2010BH004003

PATIENT
  Sex: Female
  Weight: 73 kg

DRUGS (1)
  1. HEPARIN SODIUM INJECTION [Suspect]
     Indication: HERNIA REPAIR
     Route: 042
     Dates: start: 20051001

REACTIONS (1)
  - RENAL FAILURE [None]
